FAERS Safety Report 6683801-9 (Version None)
Quarter: 2010Q2

REPORT INFORMATION
  Report Type: 
  Country: None (occurrence: None)
  Receive Date: 20100416
  Receipt Date: 20100401
  Transmission Date: 20101027
  Serious: No
  Sender: FDA-Public Use
  Company Number: 2008BI015963

PATIENT
  Age: 47 Year
  Sex: Male

DRUGS (6)
  1. TYSABRI [Suspect]
     Indication: MULTIPLE SCLEROSIS
     Route: 042
     Dates: start: 20071227
  2. NEURONTIN [Concomitant]
     Indication: NEURALGIA
     Dates: start: 20031212
  3. ADVAIR DISKUS 100/50 [Concomitant]
     Indication: ASTHMA
     Dates: start: 20031201
  4. FLONASE [Concomitant]
     Indication: RHINITIS
     Dates: start: 20000101
  5. AMBIEN [Concomitant]
     Indication: INSOMNIA
     Dates: start: 20050101
  6. MIRALAX [Concomitant]
     Indication: CONSTIPATION

REACTIONS (3)
  - HYPERTENSION [None]
  - TOOTH FRACTURE [None]
  - TYPE 2 DIABETES MELLITUS [None]
